FAERS Safety Report 8215102-1 (Version None)
Quarter: 2012Q1

REPORT INFORMATION
  Report Type: 
  Country: None (occurrence: None)
  Receive Date: 20120316
  Receipt Date: 20120229
  Transmission Date: 20120608
  Serious: Yes (Other)
  Sender: FDA-Public Use
  Company Number: PHHY2011DK62681

PATIENT
  Sex: Female
  Weight: 73.6 kg

DRUGS (22)
  1. EFFEXOR [Suspect]
     Dosage: 75 MG/DAY
     Dates: start: 20060928
  2. EFFEXOR [Suspect]
     Dosage: 150 MG/DAY
     Dates: end: 20081201
  3. MIANSERIN [Suspect]
     Indication: DEPRESSION
     Dosage: 10 MG, QD
     Dates: start: 20080925, end: 20081201
  4. PAROXETINE HCL [Suspect]
     Indication: DEPRESSION
     Dosage: 20 MG, BID
     Dates: start: 20090223
  5. TRUXAL [Suspect]
     Indication: PSYCHOTIC DISORDER
     Dates: start: 20061201, end: 20110801
  6. IBRUPROFEN [Suspect]
     Indication: HEADACHE
     Dates: start: 20060816
  7. IBUMETIN [Concomitant]
     Indication: PAIN
     Dosage: 600 MG, TID
     Dates: start: 20061201
  8. ACETAMINOPHEN [Concomitant]
  9. SEROXAT ^CIBA-GEIGY^ [Concomitant]
     Dates: end: 20100101
  10. IBRUPROFEN [Suspect]
     Dosage: 800 MG, TID (SHORTER PERIOD)
  11. PAMOL [Concomitant]
     Indication: PAIN
     Dates: start: 20061201
  12. MIGEA RAPID [Suspect]
     Indication: MIGRAINE
     Dosage: 200 MG, QD
     Dates: start: 20100618, end: 20100813
  13. TRAMADOL HCL [Suspect]
     Indication: NECK PAIN
     Dates: start: 20060816, end: 20061201
  14. TRAMADOL HCL [Suspect]
     Indication: HEADACHE
  15. NORTRIPTYLINE HCL [Suspect]
     Indication: DEPRESSION
     Dosage: 25 MG, BID
     Dates: start: 20090223, end: 20110701
  16. IBRUPROFEN [Suspect]
     Dosage: 600 MG, TID
  17. MIRTAZAPINE [Suspect]
     Indication: ANXIETY
     Dosage: 15 MG, QD
     Dates: start: 20060320
  18. IBRUPROFEN [Suspect]
     Indication: NECK PAIN
     Dates: start: 20041201, end: 20110301
  19. IMOVANE [Suspect]
     Indication: INSOMNIA
     Dosage: 7.5 MG, QD
     Dates: start: 20060406
  20. IMOVANE [Suspect]
     Dosage: 7.5 MG, QD
     Dates: start: 20060405, end: 20110401
  21. MAGNESIUM HYDROXIDE TAB [Concomitant]
     Dosage: 6 DF, (6-8 TABLETS/DAY)
     Route: 048
  22. ACETAMINOPHEN [Concomitant]
     Indication: NECK PAIN
     Dates: start: 20060816

REACTIONS (11)
  - OEDEMA PERIPHERAL [None]
  - ABDOMINAL DISTENSION [None]
  - DYSPEPSIA [None]
  - RECTAL HAEMORRHAGE [None]
  - OEDEMA [None]
  - FAECES HARD [None]
  - HAEMORRHOIDS [None]
  - CONSTIPATION [None]
  - GASTROOESOPHAGEAL REFLUX DISEASE [None]
  - FLATULENCE [None]
  - SWELLING FACE [None]
